FAERS Safety Report 7186994-2 (Version None)
Quarter: 2010Q4

REPORT INFORMATION
  Report Type: 
  Country: None (occurrence: None)
  Receive Date: 20101222
  Receipt Date: 20100712
  Transmission Date: 20110411
  Serious: Yes (Hospitalization)
  Sender: FDA-Public Use
  Company Number: US-AMGEN-KDL415474

PATIENT

DRUGS (8)
  1. ENBREL [Suspect]
     Indication: ANKYLOSING SPONDYLITIS
     Dosage: 50 MG, QWK
     Route: 058
     Dates: start: 20040721
  2. GABAPENTIN [Concomitant]
     Dosage: 300 MG, QD
  3. LANSOPRAZOLE [Concomitant]
     Dosage: 30 MG, QD
  4. NABUMETONE [Concomitant]
     Dosage: 750 MG, QD
  5. CYCLOBENZAPRINE HCL [Concomitant]
     Dosage: 10 MG, QD
  6. LEVOTHYROXINE SODIUM [Concomitant]
     Dosage: UNK UNK, QD
  7. BUPROPION [Concomitant]
  8. BISOPROLOL FUMARATE [Concomitant]

REACTIONS (1)
  - CHOLECYSTITIS [None]
